FAERS Safety Report 20702686 (Version 5)
Quarter: 2022Q2

REPORT INFORMATION
  Report Type: Report from Study
  Country: ES (occurrence: ES)
  Receive Date: 20220412
  Receipt Date: 20220610
  Transmission Date: 20220721
  Serious: Yes (Hospitalization)
  Sender: FDA-Public Use
  Company Number: ES-JAZZ-2022-ES-011396

PATIENT
  Age: 45 Year
  Sex: Male
  Weight: 70.1 kg

DRUGS (26)
  1. LURBINECTEDIN [Suspect]
     Active Substance: LURBINECTEDIN
     Indication: Gastroenteropancreatic neuroendocrine tumour disease
     Dosage: 3.68 MILLIGRAM, CYCLE: CYCLES 1 TO 4, DAY 1
     Route: 042
     Dates: start: 20211214, end: 20220222
  2. LURBINECTEDIN [Suspect]
     Active Substance: LURBINECTEDIN
     Dosage: 2.76 MILLIGRAM, CYCLE: CYCLE 5, DAY 1
     Route: 042
     Dates: start: 20220316, end: 20220316
  3. IRINOTECAN [Suspect]
     Active Substance: IRINOTECAN
     Indication: Gastroenteropancreatic neuroendocrine tumour disease
     Dosage: 143.25 MILLIGRAM, CYCLE: CYCLE 1 DAY 1 + DAY 8
     Route: 042
     Dates: start: 20211214, end: 20211221
  4. IRINOTECAN [Suspect]
     Active Substance: IRINOTECAN
     Dosage: 110.4 MILLIGRAM, CYCLE: CYCLE 2 TO 5
     Route: 042
     Dates: start: 20220111, end: 20220316
  5. LEVOTHYROXINE [Concomitant]
     Active Substance: LEVOTHYROXINE
     Indication: Central hypothyroidism
     Dosage: UNK
     Dates: start: 202110
  6. METAMIZOLE [Concomitant]
     Active Substance: METAMIZOLE
     Indication: Prophylaxis
     Dosage: UNK
     Dates: start: 20211228
  7. ACETAMINOPHEN [Concomitant]
     Active Substance: ACETAMINOPHEN
     Indication: Prophylaxis
     Dosage: UNK
     Dates: start: 20211228
  8. AMLODIPINE [Concomitant]
     Active Substance: AMLODIPINE BESYLATE
     Indication: Hypertension
     Dosage: UNK
     Dates: start: 20220111
  9. LOPERAMIDE [Concomitant]
     Active Substance: LOPERAMIDE
     Indication: Prophylaxis against diarrhoea
     Dosage: UNK
     Dates: start: 20220111
  10. CHOLECALCIFEROL [Concomitant]
     Active Substance: CHOLECALCIFEROL
     Indication: Prophylaxis
     Dosage: UNK
     Dates: start: 20220119
  11. ACETYLCYSTEINE [Concomitant]
     Active Substance: ACETYLCYSTEINE
     Indication: Immune-mediated nephritis
     Dosage: UNK
     Dates: start: 20211213
  12. ONDANSETRON [Concomitant]
     Active Substance: ONDANSETRON
     Indication: Prophylaxis of nausea and vomiting
     Dosage: 8 MILLIGRAM
     Route: 042
     Dates: start: 20220316, end: 20220323
  13. PREDNISONE [Concomitant]
     Active Substance: PREDNISONE
     Indication: Immune-mediated nephritis
     Dosage: UNK
     Dates: start: 20220201, end: 20220329
  14. PREDNISONE [Concomitant]
     Active Substance: PREDNISONE
     Dosage: UNK
     Dates: start: 20220302, end: 20220315
  15. PREDNISONE [Concomitant]
     Active Substance: PREDNISONE
     Dosage: UNK
     Dates: start: 20220331, end: 20220426
  16. DOMPERIDONE [Concomitant]
     Active Substance: DOMPERIDONE
     Indication: Prophylaxis
     Dosage: UNK
     Dates: start: 202201
  17. FIDAXOMICIN [Concomitant]
     Active Substance: FIDAXOMICIN
     Indication: Prophylaxis against diarrhoea
     Dosage: UNK
     Dates: start: 20220207, end: 20220208
  18. POTASSIUM M [Concomitant]
     Indication: Prophylaxis
     Dosage: UNK
     Dates: start: 20220222
  19. OMEPRAZOLE [Concomitant]
     Active Substance: OMEPRAZOLE
     Indication: Prophylaxis
     Dosage: UNK
     Dates: start: 20220222, end: 20220329
  20. OMEPRAZOLE [Concomitant]
     Active Substance: OMEPRAZOLE
     Dosage: UNK
     Dates: start: 20220413, end: 20220426
  21. FAMOTIDINE [Concomitant]
     Active Substance: FAMOTIDINE
     Indication: Prophylaxis
     Dosage: UNK
     Dates: start: 20220222, end: 20220329
  22. PANCRELIPASE [Concomitant]
     Active Substance: PANCRELIPASE
     Indication: Prophylaxis
     Dosage: UNK
     Dates: start: 20220310, end: 20220328
  23. FILGRASTIM [Concomitant]
     Active Substance: FILGRASTIM
     Indication: Prophylaxis
     Dosage: UNK
     Dates: start: 20220319, end: 20220323
  24. DEXAMETHASONE [Concomitant]
     Active Substance: DEXAMETHASONE
     Indication: Prophylaxis of nausea and vomiting
     Dosage: UNK
     Dates: start: 20220316, end: 20220323
  25. DEXAMETHASONE [Concomitant]
     Active Substance: DEXAMETHASONE
     Dosage: 8 MILLIGRAM
     Route: 042
     Dates: start: 20220323
  26. AMOXICILLIN\CLAVULANIC ACID [Concomitant]
     Active Substance: AMOXICILLIN\CLAVULANIC ACID
     Indication: Anal abscess
     Dosage: DURATION 10 DAYS

REACTIONS (1)
  - Pseudomembranous colitis [Recovered/Resolved]

NARRATIVE: CASE EVENT DATE: 20220329
